FAERS Safety Report 13721183 (Version 4)
Quarter: 2023Q4

REPORT INFORMATION
  Report Type: Other
  Country: IT (occurrence: IT)
  Receive Date: 20170706
  Receipt Date: 20231003
  Transmission Date: 20240110
  Serious: Yes (Other)
  Sender: FDA-Public Use
  Company Number: None

PATIENT
  Age: 36 Year
  Sex: Male

DRUGS (9)
  1. SOMATROPIN [Suspect]
     Active Substance: SOMATROPIN
     Indication: Muscle building therapy
     Route: 030
  2. NANDROLONE [Suspect]
     Active Substance: NANDROLONE
     Indication: Muscle building therapy
  3. RETINOL [Suspect]
     Active Substance: RETINOL
     Indication: Muscle building therapy
     Dosage: HIGH DOSAGE (40000 INTERNATIONAL UNITS THOUSANDS)
  4. METHYLTESTOSTERONE [Suspect]
     Active Substance: METHYLTESTOSTERONE
     Indication: Muscle building therapy
     Dosage: FREQUENCY TEXT: 2-3 PER WEEK
     Route: 030
  5. TRENBOLONE [Suspect]
     Active Substance: TRENBOLONE
     Indication: Muscle building therapy
     Dosage: UNIT DOSE: 2 TOTAL (TOTAL)
     Route: 030
  6. GONADOTROPHIN, CHORIONIC [Suspect]
     Active Substance: GONADOTROPHIN, CHORIONIC
     Indication: Muscle building therapy
     Route: 030
  7. INSULIN NOS [Suspect]
     Active Substance: INSULIN NOS
     Indication: Muscle building therapy
     Route: 058
  8. CHORIONIC GONADOTROPHIN [Suspect]
     Active Substance: CHORIOGONADOTROPIN ALFA
     Indication: Muscle building therapy
  9. TESTOSTERONE [Suspect]
     Active Substance: TESTOSTERONE
     Indication: Muscle building therapy
     Route: 030

REACTIONS (4)
  - Intracranial pressure increased [Unknown]
  - Inappropriate schedule of product administration [Unknown]
  - Drug abuse [Unknown]
  - Product administration error [Unknown]
